FAERS Safety Report 22195816 (Version 2)
Quarter: 2023Q2

REPORT INFORMATION
  Report Type: Spontaneous
  Country: US (occurrence: US)
  Receive Date: 20230411
  Receipt Date: 20230516
  Transmission Date: 20230722
  Serious: Yes (Other)
  Sender: FDA-Public Use
  Company Number: US-ASTELLAS-2022US021540

PATIENT
  Sex: Male

DRUGS (1)
  1. PROGRAF [Suspect]
     Active Substance: TACROLIMUS
     Indication: Liver transplant
     Dosage: 0.5 MG, UNKNOWN FREQ.
     Route: 065
     Dates: start: 2013

REACTIONS (3)
  - Hepatitis [Unknown]
  - Blood cholesterol increased [Unknown]
  - Memory impairment [Unknown]
